FAERS Safety Report 6530962-8 (Version None)
Quarter: 2010Q1

REPORT INFORMATION
  Report Type: 
  Country: None (occurrence: None)
  Receive Date: 20100108
  Receipt Date: 20090721
  Transmission Date: 20100710
  Serious: No
  Sender: FDA-Public Use
  Company Number: A0797987A

PATIENT
  Age: 62 Year
  Sex: Male

DRUGS (5)
  1. LOVAZA [Suspect]
     Dosage: 3CAP PER DAY
     Route: 048
     Dates: start: 20040101
  2. BYETTA [Concomitant]
  3. ZIAC [Concomitant]
  4. DIOVAN [Concomitant]
  5. TRICOR [Concomitant]

REACTIONS (1)
  - LIPASE INCREASED [None]
